FAERS Safety Report 5873121-4 (Version None)
Quarter: 2008Q3

REPORT INFORMATION
  Report Type: 
  Country: None (occurrence: None)
  Receive Date: 20080908
  Receipt Date: 20080904
  Transmission Date: 20090109
  Serious: Yes (Other)
  Sender: FDA-Public Use
  Company Number: GB-BRISTOL-MYERS SQUIBB COMPANY-14325047

PATIENT
  Age: 44 Year
  Sex: Male

DRUGS (5)
  1. EFAVIRENZ [Suspect]
     Indication: HIV INFECTION
  2. AZATHIOPRINE [Suspect]
     Indication: GLOMERULONEPHRITIS
  3. EMTRICITABINE [Suspect]
     Indication: HIV INFECTION
  4. LOPINAVIR [Suspect]
     Indication: HIV INFECTION
  5. PREDNISOLONE [Suspect]
     Indication: GLOMERULONEPHRITIS

REACTIONS (2)
  - OSTEOMYELITIS [None]
  - SALMONELLOSIS [None]
